FAERS Safety Report 17909221 (Version 1)
Quarter: 2020Q2

REPORT INFORMATION
  Report Type: Spontaneous
  Country: US (occurrence: US)
  Receive Date: 20200617
  Receipt Date: 20200617
  Transmission Date: 20200714
  Serious: Yes (Hospitalization)
  Sender: FDA-Public Use
  Company Number: US-SA-2020SA155962

PATIENT

DRUGS (10)
  1. MONTELUKAST [Suspect]
     Active Substance: MONTELUKAST SODIUM
     Indication: PREMEDICATION
     Dosage: 10 MG, QD 9INITIATED ONE DAY PRIOR TO STARTING CYCLOPHOSPHAMIDE AND CONTINUED THROUGH THE FINAL DOSE
     Route: 048
     Dates: start: 201611
  2. ONDANSETRON [Suspect]
     Active Substance: ONDANSETRON
     Indication: PREMEDICATION
     Dosage: 8 MG IV (GIVEN 30 MIN PRIOR TO THE ADMINISTRATION OF BAG #1 OF EACH DOSE)
     Route: 042
     Dates: start: 201611
  3. SODIUM CHLORIDE 0.9% [Concomitant]
     Active Substance: SODIUM CHLORIDE
     Indication: VEHICLE SOLUTION USE
     Dosage: ALL BAGS WERE PREPARED IN 100 ML 0.9% SODIUM CHLORIDE
     Dates: start: 201611
  4. CETIRIZINE HYDROCHLORIDE. [Suspect]
     Active Substance: CETIRIZINE HYDROCHLORIDE
     Indication: PREMEDICATION
     Dosage: 10 MG, QD (INITIATED 1 DAY PRIOR TO START CYCLOPHOSPHAMIDE AND CONTINUED THROUGH THE FINAL DOSE OF C
     Route: 048
     Dates: start: 201611
  5. CYCLOPHOSPHAMIDE. [Suspect]
     Active Substance: CYCLOPHOSPHAMIDE
     Indication: PLASMA CELL MYELOMA
     Dosage: EIGHT DOSES OF 350 MG/M2/DOSE (GIVEN IN 4-STEP APPROACH OF 0.1%, 1%, 10% AND 88.9% OF TOTAL DOSE)
     Dates: start: 201611
  6. DEXAMETHASONE SALT NOT SPECIFIED [Suspect]
     Active Substance: DEXAMETHASONE
     Indication: PLASMA CELL MYELOMA
     Dosage: 20 MG IV (GIVEN 30 MIN PRIOR TO THE ADMINISTRATION OF BAG #1 OF EACH DOSE)
     Route: 042
     Dates: start: 201611
  7. DIPHENHYDRAMINE. [Suspect]
     Active Substance: DIPHENHYDRAMINE
     Indication: PREMEDICATION
     Dosage: 25 MG IV (GIVEN 30 MIN PRIOR TO THE ADMINISTRATION OF BAG #1 OF EACH DOSE)
     Route: 042
     Dates: start: 201611
  8. MESNA. [Suspect]
     Active Substance: MESNA
     Dosage: CONTINUOUS IV INFUSION ON EACH DAY OF CYCLOPHOSPHAMIDE USING A 1:1 RATIO
     Route: 041
     Dates: start: 201611
  9. HYDROCORTISONE SALT NOT SPECIFIED [Suspect]
     Active Substance: HYDROCORTISONE
     Indication: PREMEDICATION
     Dosage: 50 MG IV (GIVEN 30 MIN PRIOR TO THE ADMINISTRATION OF BAG #1 OF EACH DOSE)
     Route: 042
     Dates: start: 201611
  10. FAMOTIDINE. [Suspect]
     Active Substance: FAMOTIDINE
     Indication: PREMEDICATION
     Dosage: 20 MG IV (GIVEN 30 MIN PRIOR TO THE ADMINISTRATION OF BAG #1 OF EACH DOSE)
     Route: 042
     Dates: start: 201611

REACTIONS (1)
  - Blood pressure increased [Recovered/Resolved]

NARRATIVE: CASE EVENT DATE: 2016
